FAERS Safety Report 9240156 (Version 1)
Quarter: 2013Q2

REPORT INFORMATION
  Report Type: Spontaneous
  Country: US (occurrence: None)
  Receive Date: 20130418
  Receipt Date: 20130418
  Transmission Date: 20140414
  Serious: Yes (Disabling)
  Sender: FDA-Public Use
  Company Number: None

PATIENT
  Age: 58 Year
  Sex: Female
  Weight: 77.11 kg

DRUGS (1)
  1. TEGRETOL [Suspect]
     Indication: ANXIETY
     Dates: start: 19940915, end: 19940930

REACTIONS (1)
  - Alopecia [None]
